FAERS Safety Report 20113039 (Version 1)
Quarter: 2021Q4

REPORT INFORMATION
  Report Type: Spontaneous
  Country: US (occurrence: US)
  Receive Date: 20211125
  Receipt Date: 20211125
  Transmission Date: 20220303
  Serious: Yes (Other)
  Sender: FDA-Public Use
  Company Number: US-drreddys-SPO/USA/21/0144085

PATIENT
  Age: 15 Year
  Sex: Male

DRUGS (1)
  1. ACCUTANE [Suspect]
     Active Substance: ISOTRETINOIN
     Indication: Product used for unknown indication
     Dosage: RMA ISSUE DATE: 30 JULY 2021 12:00:00 AM, 8 SEPTEMBER 2021 12:00:00 AM AND 15 OCTOBER 2021 12:00:00

REACTIONS (1)
  - Depression [Unknown]
